FAERS Safety Report 25969044 (Version 1)
Quarter: 2025Q4

REPORT INFORMATION
  Report Type: Spontaneous
  Country: EU (occurrence: EU)
  Receive Date: 20251028
  Receipt Date: 20251028
  Transmission Date: 20260117
  Serious: Yes (Hospitalization, Other)
  Sender: ASTELLAS
  Company Number: EU-ASTELLAS-2025-AER-059468

PATIENT
  Sex: Male

DRUGS (5)
  1. ENFORTUMAB VEDOTIN [Suspect]
     Active Substance: ENFORTUMAB VEDOTIN
     Indication: Transitional cell carcinoma
     Dosage: TOTAL OF NINE CYCLES
     Route: 065
     Dates: start: 202212, end: 202309
  2. PEMBROLIZUMAB [Concomitant]
     Active Substance: PEMBROLIZUMAB
     Indication: Transitional cell carcinoma
     Dosage: FIRST CYCLE
     Route: 065
     Dates: start: 202208
  3. PEMBROLIZUMAB [Concomitant]
     Active Substance: PEMBROLIZUMAB
     Indication: Transitional cell carcinoma metastatic
  4. PREDNISOLONE [Concomitant]
     Active Substance: PREDNISOLONE
     Indication: Arthralgia
     Route: 065
     Dates: start: 2022
  5. METHOTREXATE [Concomitant]
     Active Substance: METHOTREXATE
     Indication: Antisynthetase syndrome
     Route: 065
     Dates: start: 2022

REACTIONS (3)
  - Listeriosis [Unknown]
  - Bacteraemia [Unknown]
  - Rash [Unknown]

NARRATIVE: CASE EVENT DATE: 20221201
